FAERS Safety Report 6575606-4 (Version None)
Quarter: 2010Q1

REPORT INFORMATION
  Report Type: 
  Country: None (occurrence: None)
  Receive Date: 20100209
  Receipt Date: 20100202
  Transmission Date: 20100710
  Serious: Yes (Hospitalization)
  Sender: FDA-Public Use
  Company Number: B0550850A

PATIENT
  Sex: Female
  Weight: 56 kg

DRUGS (2)
  1. LAPATINIB [Suspect]
     Indication: BREAST CANCER
     Route: 048
     Dates: start: 20080814
  2. PACLITAXEL [Suspect]
     Indication: BREAST CANCER
     Route: 042
     Dates: start: 20080925, end: 20081209

REACTIONS (5)
  - CATHETER REMOVAL [None]
  - DEVICE RELATED INFECTION [None]
  - DIARRHOEA [None]
  - HAEMORRHOIDS [None]
  - PYREXIA [None]
